FAERS Safety Report 4682074-6 (Version None)
Quarter: 2005Q2

REPORT INFORMATION
  Report Type: 
  Country: None (occurrence: None)
  Receive Date: 20050602
  Receipt Date: 20041104
  Transmission Date: 20051028
  Serious: Yes (Hospitalization)
  Sender: FDA-Public Use
  Company Number: 2004US001306

PATIENT
  Age: 13 Year
  Sex: Female
  Weight: 90 kg

DRUGS (3)
  1. PROGRAF [Suspect]
     Indication: PROPHYLAXIS AGAINST TRANSPLANT REJECTION
     Dosage: SEE IMAGE; ORAL
     Route: 048
     Dates: start: 20040312, end: 20040924
  2. PROGRAF [Suspect]
     Indication: PROPHYLAXIS AGAINST TRANSPLANT REJECTION
     Dosage: SEE IMAGE; ORAL
     Route: 048
     Dates: start: 20030801
  3. PROGRAF [Suspect]
     Indication: PROPHYLAXIS AGAINST TRANSPLANT REJECTION
     Dosage: SEE IMAGE; ORAL
     Route: 048
     Dates: start: 20040925

REACTIONS (2)
  - DRUG LEVEL FLUCTUATING [None]
  - HEART TRANSPLANT REJECTION [None]
